FAERS Safety Report 5092239-X (Version None)
Quarter: 2006Q3

REPORT INFORMATION
  Report Type: 
  Country: None (occurrence: None)
  Receive Date: 20060829
  Receipt Date: 20060823
  Transmission Date: 20061208
  Serious: Yes (Other)
  Sender: FDA-Public Use
  Company Number: JP-ALLERGAN-0604229US

PATIENT
  Sex: Female

DRUGS (4)
  1. GATIFLO [Suspect]
     Indication: ULCERATIVE KERATITIS
     Dosage: UNK, QID
     Route: 047
     Dates: start: 20060707, end: 20060714
  2. GATIFLO [Suspect]
     Dosage: UNK, Q4HR
     Route: 047
     Dates: start: 20060715, end: 20060717
  3. TEARBALANCE [Suspect]
     Indication: ULCERATIVE KERATITIS
     Dosage: UNK, QID
     Route: 047
     Dates: start: 20060707, end: 20060714
  4. TEARBALANCE [Suspect]
     Dosage: UNK, Q4HR
     Route: 047
     Dates: start: 20060715, end: 20060717

REACTIONS (1)
  - ULCERATIVE KERATITIS [None]
